FAERS Safety Report 6966852-6 (Version None)
Quarter: 2010Q3

REPORT INFORMATION
  Report Type: 
  Country: None (occurrence: None)
  Receive Date: 20100906
  Receipt Date: 20100826
  Transmission Date: 20110219
  Serious: Yes (Hospitalization)
  Sender: FDA-Public Use
  Company Number: PHHY2010JP50324

PATIENT
  Age: 43 Year
  Sex: Female

DRUGS (2)
  1. TEGRETOL [Suspect]
     Indication: EPILEPSY
     Dosage: 2 TABLETS DAILY
     Route: 048
  2. ANTIBIOTICS [Concomitant]

REACTIONS (5)
  - BLOOD ALBUMIN DECREASED [None]
  - CHOLELITHIASIS [None]
  - DRUG LEVEL INCREASED [None]
  - PLATELET COUNT DECREASED [None]
  - PYREXIA [None]
